FAERS Safety Report 25528535 (Version 1)
Quarter: 2025Q3

REPORT INFORMATION
  Report Type: Report from Study
  Country: CA (occurrence: CA)
  Receive Date: 20250708
  Receipt Date: 20250708
  Transmission Date: 20251020
  Serious: Yes (Hospitalization, Other)
  Sender: TAKEDA
  Company Number: CA-TAKEDA-2025TUS061297

PATIENT
  Age: 54 Year
  Sex: Male

DRUGS (5)
  1. HUMAN IMMUNOGLOBULIN G [Suspect]
     Active Substance: HUMAN IMMUNOGLOBULIN G
     Indication: Secondary immunodeficiency
     Dosage: 12 GRAM, 1/WEEK
     Dates: start: 20241017
  2. HYDROMORPHONE [Concomitant]
     Active Substance: HYDROMORPHONE
  3. TRAZODONE [Concomitant]
     Active Substance: TRAZODONE HYDROCHLORIDE
  4. LORAZEPAM [Concomitant]
     Active Substance: LORAZEPAM
  5. VITAMIN D NOS [Concomitant]
     Active Substance: CHOLECALCIFEROL\ERGOCALCIFEROL

REACTIONS (5)
  - Pneumonia [Unknown]
  - Death of relative [Unknown]
  - Product use complaint [Unknown]
  - Needle issue [Unknown]
  - Infusion site pain [Unknown]

NARRATIVE: CASE EVENT DATE: 20250401
